FAERS Safety Report 7275769-1 (Version None)
Quarter: 2011Q1

REPORT INFORMATION
  Report Type: 
  Country: None (occurrence: None)
  Receive Date: 20110204
  Receipt Date: 20110126
  Transmission Date: 20110831
  Serious: Yes (Hospitalization, Other)
  Sender: FDA-Public Use
  Company Number: US-MERCK-1011USA01583

PATIENT
  Age: 59 Year
  Sex: Female

DRUGS (2)
  1. FOSAMAX PLUS D [Suspect]
     Indication: OSTEOPENIA
     Route: 048
     Dates: start: 19960101, end: 20100401
  2. FOSAMAX [Suspect]
     Indication: OSTEOPENIA
     Route: 048
     Dates: start: 19960101, end: 20100401

REACTIONS (9)
  - FEMUR FRACTURE [None]
  - CARDIAC DISORDER [None]
  - TIBIA FRACTURE [None]
  - STERNAL FRACTURE [None]
  - ARTHROPATHY [None]
  - NEPHROLITHIASIS [None]
  - GASTROINTESTINAL DISORDER [None]
  - PAIN IN EXTREMITY [None]
  - ANKLE FRACTURE [None]
